FAERS Safety Report 17822760 (Version 1)
Quarter: 2020Q2

REPORT INFORMATION
  Report Type: Spontaneous
  Country: IT (occurrence: IT)
  Receive Date: 20200526
  Receipt Date: 20200526
  Transmission Date: 20200714
  Serious: Yes (Hospitalization)
  Sender: FDA-Public Use
  Company Number: IT-SUN PHARMACEUTICAL INDUSTRIES LTD-2020RR-248204

PATIENT
  Age: 44 Year
  Sex: Female

DRUGS (2)
  1. TRITTICO 60 MG/ML GOCCE ORALI, SOLUZIONE [Suspect]
     Active Substance: TRAZODONE HYDROCHLORIDE
     Indication: DRUG ABUSE
     Dosage: IN TOTAL
     Route: 048
  2. CITALOPRAM [Suspect]
     Active Substance: CITALOPRAM HYDROBROMIDE
     Indication: DRUG ABUSE
     Dosage: IN TOTAL
     Route: 048

REACTIONS (4)
  - Sopor [Recovered/Resolved]
  - Intentional self-injury [Recovered/Resolved]
  - Drug abuse [Recovered/Resolved]
  - Vomiting [Recovered/Resolved]

NARRATIVE: CASE EVENT DATE: 20200417
